FAERS Safety Report 13042161 (Version 3)
Quarter: 2017Q1

REPORT INFORMATION
  Report Type: Spontaneous
  Country: US (occurrence: US)
  Receive Date: 20161219
  Receipt Date: 20170207
  Transmission Date: 20170428
  Serious: Yes (Other)
  Sender: FDA-Public Use
  Company Number: US-PFIZER INC-2016584059

PATIENT
  Age: 69 Year
  Sex: Female
  Weight: 57 kg

DRUGS (7)
  1. DIFLUCAN [Suspect]
     Active Substance: FLUCONAZOLE
     Indication: VULVOVAGINAL MYCOTIC INFECTION
     Dosage: UNK
     Dates: start: 20161129, end: 20161129
  2. DIFLUCAN [Suspect]
     Active Substance: FLUCONAZOLE
     Dosage: 150 MG, ONLY 2 DOSES
     Route: 048
     Dates: start: 20161206, end: 20161208
  3. AUGMENTIN [Suspect]
     Active Substance: AMOXICILLIN\CLAVULANATE POTASSIUM
     Dosage: 125 MG, 2X/DAY (14 DAYS BID)
     Dates: start: 20161118
  4. DIFLUCAN [Suspect]
     Active Substance: FLUCONAZOLE
     Dosage: 1 DF, UNK (ONE TABLET, SKIP A DAY, LAST TABLET)
     Dates: start: 201612
  5. AUGMENTIN [Suspect]
     Active Substance: AMOXICILLIN\CLAVULANATE POTASSIUM
     Indication: SINUSITIS
     Dosage: UNK, CYCLIC (INITIALLY ONE WEEK TREATMENT FOLLOWED ONE WEEK LATER WITH TWO WEEK TREATMENT.)
  6. DIFLUCAN [Suspect]
     Active Substance: FLUCONAZOLE
     Dosage: UNK
     Dates: start: 20161201, end: 20161201
  7. AUGMENTIN [Suspect]
     Active Substance: AMOXICILLIN\CLAVULANATE POTASSIUM
     Dosage: 500 MG, 2X/DAY (7 DAYS BID)
     Dates: start: 20161104

REACTIONS (6)
  - Hepatitis [Recovered/Resolved]
  - Chromaturia [Recovered/Resolved]
  - Fatigue [Recovered/Resolved]
  - Nausea [Recovered/Resolved]
  - Hepatic enzyme increased [Recovered/Resolved]
  - Headache [Recovered/Resolved]

NARRATIVE: CASE EVENT DATE: 201611
